FAERS Safety Report 18508280 (Version 2)
Quarter: 2020Q4

REPORT INFORMATION
  Report Type: Spontaneous
  Country: JP (occurrence: JP)
  Receive Date: 20201116
  Receipt Date: 20201209
  Transmission Date: 20210114
  Serious: No
  Sender: FDA-Public Use
  Company Number: JP-SYNEX-T202005421

PATIENT
  Age: 3 Day
  Sex: Female
  Weight: 1 kg

DRUGS (5)
  1. AMPICILLIN [Concomitant]
     Active Substance: AMPICILLIN
     Indication: NEONATAL RESPIRATORY DISTRESS SYNDROME
     Dosage: 200 MILLIGRAM/KILOGRAM, QD
     Route: 042
  2. CEFOTAXIME [Concomitant]
     Active Substance: CEFOTAXIME SODIUM
     Indication: NEONATAL RESPIRATORY DISTRESS SYNDROME
     Dosage: 200 MILLIGRAM/KILOGRAM, QD
     Route: 042
  3. GAMMA GLOBULIN [Concomitant]
     Active Substance: IMMUNE GLOBULIN NOS
     Indication: NEONATAL RESPIRATORY DISTRESS SYNDROME
     Dosage: UNK
     Route: 065
  4. INOFLO [Suspect]
     Active Substance: NITRIC OXIDE
     Indication: SEPSIS NEONATAL
     Dosage: UNK (INHALATION)
     Route: 055
  5. INOFLO [Suspect]
     Active Substance: NITRIC OXIDE
     Indication: PULMONARY HYPERTENSION

REACTIONS (2)
  - Product use in unapproved indication [Unknown]
  - Product use issue [Unknown]
